FAERS Safety Report 19184532 (Version 1)
Quarter: 2021Q2

REPORT INFORMATION
  Report Type: Spontaneous
  Country: US (occurrence: US)
  Receive Date: 20210426
  Receipt Date: 20210426
  Transmission Date: 20210717
  Serious: Yes (Life-Threatening, Hospitalization)
  Sender: FDA-Public Use
  Company Number: None

PATIENT
  Age: 76 Year
  Sex: Male

DRUGS (1)
  1. ADALIMUMAB (ADALIMUMAB 40MG/0.8ML INJ,PEN,KIT) [Suspect]
     Active Substance: ADALIMUMAB
     Dates: start: 20191120, end: 20191201

REACTIONS (2)
  - Respiratory depression [None]
  - Rash [None]

NARRATIVE: CASE EVENT DATE: 20200101
